FAERS Safety Report 13447038 (Version 4)
Quarter: 2017Q3

REPORT INFORMATION
  Report Type: Spontaneous
  Country: US (occurrence: US)
  Receive Date: 20170417
  Receipt Date: 20170925
  Transmission Date: 20171127
  Serious: No
  Sender: FDA-Public Use
  Company Number: US-PFIZER INC-2017159222

PATIENT
  Age: 70 Year
  Sex: Female

DRUGS (7)
  1. TOBRAMYCIN. [Suspect]
     Active Substance: TOBRAMYCIN
     Dosage: UNK
  2. EUCALYPTUS OIL [Suspect]
     Active Substance: EUCALYPTUS OIL
     Dosage: UNK
  3. CAMPHOR [Suspect]
     Active Substance: CAMPHOR
     Dosage: UNK
  4. PETROLEUM WHITE [Suspect]
     Active Substance: PARAFFIN
     Dosage: UNK
  5. TURPENTINE. [Suspect]
     Active Substance: TURPENTINE
     Dosage: UNK
  6. VICKS VAPORUB [Suspect]
     Active Substance: CAMPHOR (SYNTHETIC)\EUCALYPTUS OIL\MENTHOL
  7. MENTHOL. [Suspect]
     Active Substance: MENTHOL
     Dosage: UNK

REACTIONS (1)
  - Drug hypersensitivity [Unknown]
